FAERS Safety Report 15867388 (Version 1)
Quarter: 2019Q1

REPORT INFORMATION
  Report Type: Spontaneous
  Country: FR (occurrence: FR)
  Receive Date: 20190125
  Receipt Date: 20190125
  Transmission Date: 20190417
  Serious: Yes (Hospitalization, Other)
  Sender: FDA-Public Use
  Company Number: FR-RECORDATI RARE DISEASES INC.-FR-R13005-19-00012

PATIENT
  Age: 15 Year
  Sex: Male
  Weight: 51 kg

DRUGS (3)
  1. VINCRISTINE [Suspect]
     Active Substance: VINCRISTINE
     Indication: ALVEOLAR RHABDOMYOSARCOMA
     Route: 042
     Dates: start: 20180918, end: 20180918
  2. DACTINOMYCIN [Suspect]
     Active Substance: DACTINOMYCIN
     Indication: ALVEOLAR RHABDOMYOSARCOMA
     Route: 042
     Dates: start: 20180918, end: 20180918
  3. IFOSFAMIDE. [Suspect]
     Active Substance: IFOSFAMIDE
     Indication: ALVEOLAR RHABDOMYOSARCOMA
     Route: 042
     Dates: start: 20180918, end: 20180918

REACTIONS (1)
  - Tonic clonic movements [Recovered/Resolved]

NARRATIVE: CASE EVENT DATE: 20180918
